FAERS Safety Report 7819408-7 (Version None)
Quarter: 2011Q4

REPORT INFORMATION
  Report Type: 
  Country: None (occurrence: None)
  Receive Date: 20111018
  Receipt Date: 20100930
  Transmission Date: 20120403
  Serious: No
  Sender: FDA-Public Use
  Company Number: US-ASTRAZENECA-2010SE46391

PATIENT
  Age: 63 Year
  Sex: Female
  Weight: 44.5 kg

DRUGS (6)
  1. FOSAMAX [Concomitant]
     Indication: OSTEOPOROSIS
     Route: 048
  2. GABAPENTIN [Concomitant]
     Indication: NERVE COMPRESSION
     Route: 048
  3. PROAIR HFA [Concomitant]
     Indication: ASTHMA
     Route: 065
  4. EVISTA [Concomitant]
     Indication: OSTEOPOROSIS
     Route: 048
  5. AMOX/CLAV [Concomitant]
     Indication: SINUSITIS
     Route: 048
  6. SYMBICORT [Suspect]
     Indication: ASTHMA
     Dosage: 80 UG TWO PUFFS
     Route: 055

REACTIONS (3)
  - SINUSITIS [None]
  - DYSPNOEA [None]
  - DRUG DOSE OMISSION [None]
